FAERS Safety Report 8522838-1 (Version None)
Quarter: 2012Q3

REPORT INFORMATION
  Report Type: 
  Country: None (occurrence: None)
  Receive Date: 20120720
  Receipt Date: 20120706
  Transmission Date: 20120928
  Serious: Yes (Life-Threatening, Hospitalization, Other)
  Sender: FDA-Public Use
  Company Number: GB-PAR PHARMACEUTICAL, INC-2012SCPR004496

PATIENT

DRUGS (2)
  1. OXCARBAZEPINE [Suspect]
     Indication: PETIT MAL EPILEPSY
     Dosage: UNK, UNKNOWN
     Route: 048
  2. PROPAFENONE HCL [Suspect]
     Indication: ATRIAL FIBRILLATION
     Dosage: UNK, UNKNOWN
     Route: 048

REACTIONS (13)
  - ELECTROCARDIOGRAM QRS COMPLEX PROLONGED [None]
  - PULSELESS ELECTRICAL ACTIVITY [None]
  - MULTIPLE DRUG OVERDOSE [None]
  - METABOLIC ACIDOSIS [None]
  - COMA [None]
  - VENTRICULAR TACHYCARDIA [None]
  - ELECTROCARDIOGRAM QT PROLONGED [None]
  - GRAND MAL CONVULSION [None]
  - CARDIOTOXICITY [None]
  - CARDIAC ARREST [None]
  - RENAL FAILURE ACUTE [None]
  - LIVER FUNCTION TEST ABNORMAL [None]
  - TOXICITY TO VARIOUS AGENTS [None]
